FAERS Safety Report 8573628-5 (Version None)
Quarter: 2012Q3

REPORT INFORMATION
  Report Type: 
  Country: None (occurrence: None)
  Receive Date: 20120806
  Receipt Date: 20120726
  Transmission Date: 20120928
  Serious: Yes (Other)
  Sender: FDA-Public Use
  Company Number: US-ROCHE-1093854

PATIENT
  Sex: Male

DRUGS (1)
  1. RANIBIZUMAB [Suspect]
     Indication: AGE-RELATED MACULAR DEGENERATION
     Dosage: FREQUENCY: EVERY 6-10 WEEKS
     Route: 050
     Dates: start: 20070101

REACTIONS (2)
  - AGE-RELATED MACULAR DEGENERATION [None]
  - BLINDNESS [None]
